FAERS Safety Report 6489420-1 (Version None)
Quarter: 2009Q4

REPORT INFORMATION
  Report Type: 
  Country: None (occurrence: None)
  Receive Date: 20091210
  Receipt Date: 20091012
  Transmission Date: 20100525
  Serious: No
  Sender: FDA-Public Use
  Company Number: US-AMGEN-KDL368959

PATIENT
  Sex: Male

DRUGS (2)
  1. ENBREL [Suspect]
     Indication: RHEUMATOID ARTHRITIS
     Route: 058
  2. HUMIRA [Suspect]
     Dates: start: 20090101, end: 20090101

REACTIONS (8)
  - ABDOMINAL PAIN UPPER [None]
  - DEFORMITY [None]
  - DENTAL CARIES [None]
  - FLATULENCE [None]
  - JOINT STIFFNESS [None]
  - RED BLOOD CELL SEDIMENTATION RATE INCREASED [None]
  - RHEUMATOID ARTHRITIS [None]
  - RHEUMATOID NODULE [None]
